FAERS Safety Report 9105520 (Version 1)
Quarter: 2013Q1

REPORT INFORMATION
  Report Type: Report from Study
  Country: CZ (occurrence: CZ)
  Receive Date: 20130220
  Receipt Date: 20130220
  Transmission Date: 20140127
  Serious: Yes (Hospitalization)
  Sender: FDA-Public Use
  Company Number: CZ-BAYER-2013-016479

PATIENT
  Age: 65 Year
  Sex: Female
  Weight: 63 kg

DRUGS (8)
  1. REGORAFENIB [Suspect]
     Indication: GASTROINTESTINAL STROMAL TUMOUR
     Dosage: CYCLE 1, 160 MG PER DAY
     Route: 048
     Dates: start: 20130124, end: 20130201
  2. TRAMADOL [Concomitant]
     Indication: TUMOUR PAIN
     Dosage: 20 GTT, PRN
     Route: 048
     Dates: start: 20130123, end: 20130208
  3. TRAMADOL [Concomitant]
     Indication: BACK PAIN
  4. FURON [FUROSEMIDE] [Concomitant]
     Dosage: DAILY DOSE 40 MG
     Route: 048
     Dates: start: 20130204
  5. PRESTARIUM [Concomitant]
     Indication: CARDIAC FAILURE CHRONIC
     Dosage: DAILY DOSE 2.5 MG
     Route: 048
     Dates: start: 20130201
  6. CARDILAN [Concomitant]
     Indication: CARDIAC FAILURE CHRONIC
     Dosage: 175 MG, TID
     Route: 048
     Dates: start: 201302
  7. CARVEDILOL [Concomitant]
     Dosage: 12.5 MG, QD
     Route: 048
     Dates: start: 201302
  8. VEROSPIRON [Concomitant]
     Dosage: 25 MG, QD
     Route: 048
     Dates: start: 201302

REACTIONS (1)
  - Dyspnoea [Recovered/Resolved]
